FAERS Safety Report 5201153-8 (Version None)
Quarter: 2007Q1

REPORT INFORMATION
  Report Type: 
  Country: None (occurrence: None)
  Receive Date: 20070108
  Receipt Date: 20061226
  Transmission Date: 20070707
  Serious: Yes (Hospitalization)
  Sender: FDA-Public Use
  Company Number: IT-ELI_LILLY_AND_COMPANY-IT200612004556

PATIENT
  Age: 67 Year
  Sex: Male

DRUGS (5)
  1. DULOXETINE HYDROCHLORIDE [Suspect]
     Indication: DEPRESSION
     Dosage: 30 MG/KG, DAILY (1/D)
     Route: 048
     Dates: start: 20061110, end: 20061116
  2. ATENOLOL W/CHLORTALIDONE [Concomitant]
     Dosage: 100 MG, DAILY (1/D)
     Route: 048
  3. ATENOLOL W/CHLORTALIDONE [Concomitant]
     Dosage: 25 MG, DAILY (1/D)
     Route: 048
  4. LEVOPRAID [Concomitant]
     Dosage: 50 MG, 2/D
     Route: 048
  5. DEPAS [Concomitant]
     Dosage: 30 GTT, UNK
     Route: 048

REACTIONS (3)
  - BLOOD POTASSIUM DECREASED [None]
  - BLOOD SODIUM DECREASED [None]
  - BRADYPHRENIA [None]
